FAERS Safety Report 12143501 (Version 1)
Quarter: 2016Q1

REPORT INFORMATION
  Report Type: Spontaneous
  Country: US (occurrence: US)
  Receive Date: 20160304
  Receipt Date: 20160304
  Transmission Date: 20160526
  Serious: No
  Sender: FDA-Public Use
  Company Number: US-JNJFOC-20160215752

PATIENT
  Sex: Male
  Weight: 72.58 kg

DRUGS (4)
  1. MENS ROGAINE EXTRA STRENGTH [Suspect]
     Active Substance: MINOXIDIL
     Route: 061
  2. VITAMIN D [Concomitant]
     Active Substance: CHOLECALCIFEROL
     Indication: GENERAL PHYSICAL CONDITION
     Dosage: DOSE: 1 DAY
     Route: 065
  3. MENS ROGAINE EXTRA STRENGTH [Suspect]
     Active Substance: MINOXIDIL
     Indication: ALOPECIA
     Dosage: 1/2 CUP, MAYBE A LITTLE MORE
     Route: 061
  4. FISH OIL [Concomitant]
     Active Substance: FISH OIL
     Indication: GENERAL PHYSICAL CONDITION
     Dosage: DOSE: 1 DAY
     Route: 065

REACTIONS (2)
  - Alopecia [Recovered/Resolved]
  - Overdose [Recovered/Resolved]
